FAERS Safety Report 8762506 (Version 1)
Quarter: 2012Q4

REPORT INFORMATION
  Report Type: 
  Country: US (occurrence: US)
  Receive Date: 20120830
  Receipt Date: 20120830
  Transmission Date: 20130627
  Serious: No
  Sender: FDA-Public Use
  Company Number: US-PFIZER INC-2012211120

PATIENT
  Age: 53 Year
  Sex: Female
  Weight: 120 kg

DRUGS (1)
  1. NORVASC [Suspect]
     Indication: BLOOD PRESSURE ABNORMAL
     Dosage: UNK, daily
     Route: 048
     Dates: start: 2011, end: 2012

REACTIONS (1)
  - Cough [Recovered/Resolved]
